FAERS Safety Report 22349722 (Version 8)
Quarter: 2023Q4

REPORT INFORMATION
  Report Type: Report from Study
  Country: US (occurrence: US)
  Receive Date: 20230522
  Receipt Date: 20231102
  Transmission Date: 20240110
  Serious: Yes (Other)
  Sender: FDA-Public Use
  Company Number: US-HORIZON THERAPEUTICS-HZN-2023-003790

PATIENT

DRUGS (16)
  1. TEPEZZA [Suspect]
     Active Substance: TEPROTUMUMAB-TRBW
     Indication: Endocrine ophthalmopathy
     Dosage: FIRST INFUSION: 930 MG, EVERY 3 WEEKS (FOR 1ST INFUSION BUT WILL BE 1860 MG)
     Route: 042
     Dates: start: 20230502
  2. TEPEZZA [Suspect]
     Active Substance: TEPROTUMUMAB-TRBW
     Dosage: 1860 MG, EVERY 3 WEEKS
     Route: 042
     Dates: start: 2023
  3. TEPEZZA [Suspect]
     Active Substance: TEPROTUMUMAB-TRBW
     Dosage: 2ND INFUSION 1860 MG, EVERY 3 WEEKS
     Route: 042
     Dates: start: 20230707
  4. TEPEZZA [Suspect]
     Active Substance: TEPROTUMUMAB-TRBW
     Dosage: 3RD INFUSION, 1860 MG, EVERY 3 WEEKS
     Route: 042
     Dates: start: 20230728
  5. TEPEZZA [Suspect]
     Active Substance: TEPROTUMUMAB-TRBW
     Dosage: 4TH INFUSION, 1860 MG, EVERY 3 WEEKS
     Route: 042
     Dates: start: 20230816
  6. CALTRATE WITH VITAMIN D [Concomitant]
     Active Substance: CALCIUM CARBONATE\CHOLECALCIFEROL
  7. ATENOLOL [Concomitant]
     Active Substance: ATENOLOL
  8. FAMOTIDINE [Concomitant]
     Active Substance: FAMOTIDINE
  9. CELLCEPT [Concomitant]
     Active Substance: MYCOPHENOLATE MOFETIL
  10. ATORVASTATIN [Concomitant]
     Active Substance: ATORVASTATIN
  11. METHIMAZOLE [Concomitant]
     Active Substance: METHIMAZOLE
  12. AMLODIPINE [Concomitant]
     Active Substance: AMLODIPINE BESYLATE
  13. DEXCON [Concomitant]
  14. LOSARTAN [Concomitant]
     Active Substance: LOSARTAN
  15. SYSTANE (HYPROMELLOSE 2910 (4000 MPA.S)) [Concomitant]
     Active Substance: HYPROMELLOSE 2910 (4000 MPA.S)
  16. NOVORAPID [Concomitant]
     Active Substance: INSULIN ASPART
     Indication: Product used for unknown indication
     Dosage: UNK
     Route: 065

REACTIONS (4)
  - Blood pressure increased [Unknown]
  - Heart rate increased [Unknown]
  - Blood glucose increased [Recovered/Resolved]
  - Muscle spasms [Unknown]

NARRATIVE: CASE EVENT DATE: 20230101
